FAERS Safety Report 14880321 (Version 1)
Quarter: 2018Q2

REPORT INFORMATION
  Report Type: Spontaneous
  Country: US (occurrence: US)
  Receive Date: 20180425
  Receipt Date: 20180425
  Transmission Date: 20180711
  Serious: Yes (Hospitalization)
  Sender: FDA-Public Use
  Company Number: None

PATIENT
  Age: 67 Year
  Sex: Female

DRUGS (2)
  1. SPRYCEL [Suspect]
     Active Substance: DASATINIB
     Indication: ACUTE LYMPHOCYTIC LEUKAEMIA
     Route: 048
     Dates: start: 20150603
  2. VALTREX, CALCIUM/D3 [Concomitant]

REACTIONS (3)
  - Drug dose omission [None]
  - Hip surgery [None]
  - Post procedural infection [None]

NARRATIVE: CASE EVENT DATE: 20180113
